FAERS Safety Report 19595296 (Version 4)
Quarter: 2021Q3

REPORT INFORMATION
  Report Type: Other
  Country: US (occurrence: US)
  Receive Date: 20210722
  Receipt Date: 20210923
  Transmission Date: 20211014
  Serious: Yes (Other)
  Sender: FDA-Public Use
  Company Number: US-ROCHE-2871747

PATIENT
  Sex: Male
  Weight: 57.5 kg

DRUGS (7)
  1. ACETAMINOPHEN. [Concomitant]
     Active Substance: ACETAMINOPHEN
     Route: 048
  2. CELEXA [Concomitant]
     Active Substance: CITALOPRAM HYDROBROMIDE
     Route: 048
  3. RESTASIS [Concomitant]
     Active Substance: CYCLOSPORINE
  4. LEVOTHYROXINE SODIUM. [Concomitant]
     Active Substance: LEVOTHYROXINE SODIUM
     Dosage: 75 MCG
     Route: 048
  5. PEGASYS [Suspect]
     Active Substance: PEGINTERFERON ALFA-2A
     Indication: KAPOSI^S SARCOMA
     Dosage: INJECT 0.33ML (60MCG) SUBCUTANEOUSLY EVERY 7 DAYS?180 MCG/ML
     Route: 065
     Dates: start: 20210421
  6. KETOCONAZOLE. [Concomitant]
     Active Substance: KETOCONAZOLE
  7. LEVOTHYROXINE SODIUM. [Concomitant]
     Active Substance: LEVOTHYROXINE SODIUM
     Dosage: 37.5 MCG
     Route: 048

REACTIONS (2)
  - Loss of consciousness [Unknown]
  - Off label use [Unknown]
